FAERS Safety Report 17992458 (Version 2)
Quarter: 2021Q2

REPORT INFORMATION
  Report Type: Spontaneous
  Country: US (occurrence: US)
  Receive Date: 20200708
  Receipt Date: 20210623
  Transmission Date: 20210717
  Serious: Yes (Other)
  Sender: FDA-Public Use
  Company Number: US-SA-2020SA174817

PATIENT
  Age: 76 Year
  Sex: Male

DRUGS (1)
  1. ZANTAC [Suspect]
     Active Substance: RANITIDINE HYDROCHLORIDE
     Indication: DYSPEPSIA
     Dosage: 150 MG, QD
     Dates: start: 201001, end: 201512

REACTIONS (4)
  - Disease progression [Unknown]
  - Bladder cancer [Unknown]
  - Hepatic cancer stage IV [Unknown]
  - Gallbladder cancer stage IV [Unknown]

NARRATIVE: CASE EVENT DATE: 201503
